FAERS Safety Report 4566369-2 (Version None)
Quarter: 2005Q1

REPORT INFORMATION
  Report Type: 
  Country: None (occurrence: None)
  Receive Date: 20050126
  Receipt Date: 20050126
  Transmission Date: 20050727
  Serious: Yes (Other)
  Sender: FDA-Public Use
  Company Number: None

PATIENT
  Age: 19 Year
  Sex: Female
  Weight: 56.6996 kg

DRUGS (3)
  1. ADDERALL XR 10 [Suspect]
     Indication: ATTENTION DEFICIT/HYPERACTIVITY DISORDER
     Dosage: 10   Q AM   ORAL
     Route: 048
     Dates: start: 20041228, end: 20041231
  2. SYNTHROID [Concomitant]
  3. PROZAC [Concomitant]

REACTIONS (2)
  - COGNITIVE DISORDER [None]
  - FEELING DRUNK [None]
